FAERS Safety Report 18440196 (Version 1)
Quarter: 2020Q4

REPORT INFORMATION
  Report Type: Spontaneous
  Country: US (occurrence: US)
  Receive Date: 20201029
  Receipt Date: 20201029
  Transmission Date: 20210114
  Serious: No
  Sender: FDA-Public Use
  Company Number: None

PATIENT
  Age: 71 Year
  Sex: Male

DRUGS (9)
  1. CASODEX [Concomitant]
     Active Substance: BICALUTAMIDE
  2. ERLEADA [Suspect]
     Active Substance: APALUTAMIDE
     Indication: PROSTATE CANCER
     Route: 048
     Dates: start: 20200830
  3. FLUTICASONE. [Concomitant]
     Active Substance: FLUTICASONE
  4. MUCINEX ER [Concomitant]
  5. PLAQUENIL [Concomitant]
     Active Substance: HYDROXYCHLOROQUINE SULFATE
  6. SIMVASTATIN. [Concomitant]
     Active Substance: SIMVASTATIN
  7. CHLORTHALID [Concomitant]
     Active Substance: CHLORTHALIDONE
  8. KLOR-CON 8 ER [Concomitant]
  9. TAMSULOSIN [Concomitant]
     Active Substance: TAMSULOSIN

REACTIONS (4)
  - Arthritis [None]
  - Fatigue [None]
  - Flushing [None]
  - Arthralgia [None]

NARRATIVE: CASE EVENT DATE: 20201028
